FAERS Safety Report 7125769-7 (Version None)
Quarter: 2010Q4

REPORT INFORMATION
  Report Type: 
  Country: None (occurrence: None)
  Receive Date: 20101129
  Receipt Date: 20101118
  Transmission Date: 20110411
  Serious: Yes (Other)
  Sender: FDA-Public Use
  Company Number: B0685358A

PATIENT
  Sex: Female
  Weight: 48 kg

DRUGS (16)
  1. ALKERAN [Suspect]
     Indication: STEM CELL TRANSPLANT
     Dosage: 200MG PER DAY
     Route: 042
     Dates: start: 20040510, end: 20040510
  2. NEUTROGIN [Concomitant]
     Dates: start: 20040511, end: 20040513
  3. NEUTROGIN [Concomitant]
     Dates: start: 20040516, end: 20040525
  4. DIFLUCAN [Concomitant]
     Dosage: 200MG PER DAY
     Route: 048
     Dates: start: 20040109, end: 20040515
  5. CRAVIT [Concomitant]
     Dosage: 300MG PER DAY
     Route: 048
     Dates: start: 20040502, end: 20040515
  6. POLYMYXIN-B-SULFATE [Concomitant]
     Dosage: 3IU6 PER DAY
     Route: 048
     Dates: start: 20040502, end: 20040523
  7. BAKTAR [Concomitant]
     Dosage: 4IUAX PER DAY
     Route: 048
     Dates: start: 20040502, end: 20040521
  8. ZOVIRAX [Concomitant]
     Dosage: 1000MG PER DAY
     Route: 048
     Dates: start: 20040507, end: 20040514
  9. ACYCLOVIR [Concomitant]
     Dosage: 750MG PER DAY
     Route: 042
     Dates: start: 20040515, end: 20040524
  10. VENOGLOBULIN [Concomitant]
     Route: 042
     Dates: start: 20040505, end: 20040526
  11. FLUCONAZOLE [Concomitant]
     Dosage: 200MG PER DAY
     Route: 042
     Dates: start: 20040516, end: 20040527
  12. IMIPENEM AND CILASTATIN [Concomitant]
     Dosage: 500MG PER DAY
     Dates: start: 20040512, end: 20040513
  13. IMIPENEM AND CILASTATIN [Concomitant]
     Dosage: 250MG PER DAY
     Dates: start: 20040530, end: 20040530
  14. OMEGACIN [Concomitant]
     Dosage: 300MG PER DAY
     Route: 042
     Dates: start: 20040514, end: 20040517
  15. BISPHONAL [Concomitant]
     Dosage: 10MG TWO TIMES PER WEEK
     Route: 042
     Dates: start: 20040123, end: 20040611
  16. SULPERAZON [Concomitant]
     Dosage: 2G IN THE MORNING
     Route: 042
     Dates: start: 20040519, end: 20040527

REACTIONS (1)
  - MYOCLONUS [None]
